FAERS Safety Report 10083858 (Version 13)
Quarter: 2018Q4

REPORT INFORMATION
  Report Type: Report from Study
  Country: CA (occurrence: CA)
  Receive Date: 20140417
  Receipt Date: 20181107
  Transmission Date: 20190204
  Serious: Yes (Other)
  Sender: FDA-Public Use
  Company Number: PHHY2013CA089649

PATIENT
  Age: 66 Year
  Sex: Male

DRUGS (5)
  1. SANDOSTATIN LAR DEPOT [Suspect]
     Active Substance: OCTREOTIDE ACETATE
     Indication: METASTASES TO LUNG
  2. SANDOSTATIN [Suspect]
     Active Substance: OCTREOTIDE ACETATE
     Indication: METASTASES TO LUNG
  3. SANDOSTATIN LAR DEPOT [Suspect]
     Active Substance: OCTREOTIDE ACETATE
     Indication: CARCINOID TUMOUR
     Dosage: 40 MG, QMO
     Route: 030
     Dates: start: 20170801
  4. SANDOSTATIN [Suspect]
     Active Substance: OCTREOTIDE ACETATE
     Indication: NEUROENDOCRINE TUMOUR
     Dosage: TID FOR 2 WEEKS
     Route: 058
     Dates: start: 20130605, end: 201306
  5. SANDOSTATIN LAR DEPOT [Suspect]
     Active Substance: OCTREOTIDE ACETATE
     Indication: NEUROENDOCRINE TUMOUR

REACTIONS (13)
  - Bone density increased [Unknown]
  - Blood pressure increased [Unknown]
  - Hot flush [Unknown]
  - Oropharyngeal pain [Unknown]
  - Injection site pruritus [Unknown]
  - Hepatic neoplasm [Unknown]
  - Blood pressure systolic increased [Unknown]
  - Blood glucose increased [Unknown]
  - Ascites [Unknown]
  - Nasal congestion [Unknown]
  - General physical health deterioration [Unknown]
  - Diarrhoea [Unknown]
  - Needle issue [Unknown]

NARRATIVE: CASE EVENT DATE: 20180116
